FAERS Safety Report 9168271 (Version 1)
Quarter: 2013Q1

REPORT INFORMATION
  Report Type: Spontaneous
  Country: US (occurrence: US)
  Receive Date: 20130318
  Receipt Date: 20130318
  Transmission Date: 20140127
  Serious: Yes (Other)
  Sender: FDA-Public Use
  Company Number: PHEH2013US006060

PATIENT
  Age: 58 Year
  Sex: Female
  Weight: 65.76 kg

DRUGS (7)
  1. GILENYA [Suspect]
     Indication: MULTIPLE SCLEROSIS
     Dosage: 0.5 MG, QD
     Dates: start: 20130313
  2. CYMBALTA [Concomitant]
  3. TRAZODONE [Concomitant]
  4. ESTRADIOL [Concomitant]
  5. OXYCODONE [Concomitant]
  6. NORTRIPTYLINE [Concomitant]
  7. HYDROCODONE [Concomitant]

REACTIONS (5)
  - Confusional state [Recovered/Resolved]
  - Slow speech [Recovered/Resolved]
  - Dysarthria [Recovered/Resolved]
  - Feeling cold [Recovered/Resolved]
  - Dizziness [Recovered/Resolved]
